FAERS Safety Report 21579843 (Version 1)
Quarter: 2022Q4

REPORT INFORMATION
  Report Type: Spontaneous
  Country: DE (occurrence: DE)
  Receive Date: 20221110
  Receipt Date: 20221110
  Transmission Date: 20230113
  Serious: Yes (Other)
  Sender: FDA-Public Use
  Company Number: DE-002147023-NVSC2022DE207555

PATIENT
  Sex: Male

DRUGS (2)
  1. MORPHINE SULFATE [Suspect]
     Active Substance: MORPHINE SULFATE
     Indication: Tumour pain
     Dosage: 10 MG (SHORT-ACTING)
     Route: 048
  2. FENTANYL [Suspect]
     Active Substance: FENTANYL
     Indication: Tumour pain
     Dosage: UNK (100 UG/H)
     Route: 065

REACTIONS (4)
  - Metastases to spine [Unknown]
  - Pain [Unknown]
  - Metastases to bone [Unknown]
  - Drug effect less than expected [Unknown]

NARRATIVE: CASE EVENT DATE: 20220101
